FAERS Safety Report 4745034-2 (Version None)
Quarter: 2005Q3

REPORT INFORMATION
  Report Type: 
  Country: None (occurrence: None)
  Receive Date: 20050811
  Receipt Date: 20050801
  Transmission Date: 20060218
  Serious: Yes (Other)
  Sender: FDA-Public Use
  Company Number: US015730

PATIENT
  Age: 72 Year
  Sex: Male

DRUGS (3)
  1. PROVIGIL [Suspect]
     Indication: NARCOLEPSY
     Dosage: 800 MG QD ORAL
     Route: 048
     Dates: start: 20000101
  2. LIPITOR [Concomitant]
  3. NEXIUM [Concomitant]

REACTIONS (1)
  - PANCREATITIS CHRONIC [None]
